FAERS Safety Report 15903241 (Version 11)
Quarter: 2023Q2

REPORT INFORMATION
  Report Type: Report from Study
  Country: CA (occurrence: CA)
  Receive Date: 20190202
  Receipt Date: 20230408
  Transmission Date: 20230722
  Serious: Yes (Other)
  Sender: FDA-Public Use
  Company Number: PHHY2019CA015584

PATIENT
  Age: 17 Year
  Sex: Female

DRUGS (5)
  1. ERELZI [Suspect]
     Active Substance: ETANERCEPT-SZZS
     Indication: Juvenile idiopathic arthritis
     Dosage: 50 MG, QW
     Route: 058
     Dates: start: 20190104
  2. ERELZI [Suspect]
     Active Substance: ETANERCEPT-SZZS
     Indication: Ankylosing spondylitis
     Dosage: 50 MG, QW
     Route: 058
     Dates: start: 20190118
  3. ERELZI [Suspect]
     Active Substance: ETANERCEPT-SZZS
     Dosage: 50 MG, QW
     Route: 058
     Dates: start: 20190402
  4. ERELZI [Suspect]
     Active Substance: ETANERCEPT-SZZS
     Dosage: 50 MG, QW
     Route: 058
     Dates: start: 20191020
  5. IBUPROFEN [Concomitant]
     Active Substance: IBUPROFEN
     Indication: Product used for unknown indication
     Dosage: UNK
     Route: 065
     Dates: start: 2017

REACTIONS (14)
  - Loss of consciousness [Unknown]
  - Dyspepsia [Not Recovered/Not Resolved]
  - Decreased appetite [Unknown]
  - Fall [Unknown]
  - Head injury [Unknown]
  - Fear of injection [Unknown]
  - Illness [Not Recovered/Not Resolved]
  - Respiratory rate increased [Unknown]
  - Heart rate increased [Unknown]
  - Back pain [Not Recovered/Not Resolved]
  - Viral infection [Unknown]
  - Pyrexia [Unknown]
  - Injection site pain [Unknown]
  - Malaise [Unknown]

NARRATIVE: CASE EVENT DATE: 20190101
